FAERS Safety Report 15617953 (Version 2)
Quarter: 2019Q2

REPORT INFORMATION
  Report Type: Spontaneous
  Country: US (occurrence: US)
  Receive Date: 20181114
  Receipt Date: 20190509
  Transmission Date: 20190711
  Serious: No
  Sender: FDA-Public Use
  Company Number: US-PFIZER INC-2018468004

PATIENT
  Age: 30 Year
  Sex: Female

DRUGS (4)
  1. CECLOR [Suspect]
     Active Substance: CEFACLOR
     Dosage: UNK
  2. MORPHINE SULFATE. [Suspect]
     Active Substance: MORPHINE SULFATE
     Dosage: UNK
  3. ACYCLOVIR [ACICLOVIR] [Suspect]
     Active Substance: ACYCLOVIR
     Dosage: UNK
  4. SULFASALAZINE. [Suspect]
     Active Substance: SULFASALAZINE
     Dosage: UNK

REACTIONS (1)
  - Drug hypersensitivity [Unknown]
